FAERS Safety Report 8813067 (Version 1)
Quarter: 2012Q4

REPORT INFORMATION
  Report Type: Report from Study
  Country: US (occurrence: US)
  Receive Date: 20120927
  Receipt Date: 20120927
  Transmission Date: 20130627
  Serious: Yes (Hospitalization)
  Sender: FDA-Public Use
  Company Number: US-ROCHE-1130005

PATIENT
  Age: 61 Year
  Sex: Male

DRUGS (11)
  1. PEGASYS [Suspect]
     Indication: HEPATITIS C
     Route: 058
     Dates: start: 20120802
  2. COPEGUS [Suspect]
     Indication: HEPATITIS C
     Route: 048
     Dates: start: 20120802, end: 20120829
  3. COPEGUS [Suspect]
     Route: 048
     Dates: start: 20120820
  4. ASUNAPREVIR [Suspect]
     Indication: HEPATITIS C
     Route: 048
     Dates: start: 20120802
  5. DACLATASVIR [Suspect]
     Indication: HEPATITIS C
     Route: 048
     Dates: start: 20120802
  6. ADDERALL [Concomitant]
     Route: 065
     Dates: start: 2007
  7. IBUPROFEN [Concomitant]
     Route: 065
     Dates: start: 2011
  8. LISINOPRIL [Concomitant]
     Route: 065
     Dates: start: 2009
  9. ZYPREXA [Concomitant]
     Route: 065
     Dates: start: 2007
  10. ALPHAGAN [Concomitant]
     Route: 065
     Dates: start: 2011
  11. LUMIGAN [Concomitant]
     Route: 065
     Dates: start: 2011

REACTIONS (3)
  - Anaemia [Recovered/Resolved]
  - Dehydration [Recovered/Resolved]
  - Renal failure acute [Recovered/Resolved]
